FAERS Safety Report 24833169 (Version 1)
Quarter: 2025Q1

REPORT INFORMATION
  Report Type: Report from Study
  Country: US (occurrence: US)
  Receive Date: 20250111
  Receipt Date: 20250111
  Transmission Date: 20250409
  Serious: Yes (Other)
  Sender: IPSEN BIOPHARMACEUTICALS, INC.
  Company Number: US-IPSEN Group, Research and Development-2025-00587

PATIENT
  Age: 76 Year
  Sex: Female

DRUGS (1)
  1. DYSPORT [Suspect]
     Active Substance: ABOBOTULINUMTOXINA
     Indication: Torticollis
     Route: 030
     Dates: start: 20241228, end: 20241228

REACTIONS (3)
  - Muscular weakness [Recovering/Resolving]
  - Muscle strain [Recovering/Resolving]
  - Pain [Recovering/Resolving]
